FAERS Safety Report 9013364 (Version 2)
Quarter: 2013Q2

REPORT INFORMATION
  Report Type: Report from Study
  Country: NO (occurrence: NO)
  Receive Date: 20130114
  Receipt Date: 20130428
  Transmission Date: 20140414
  Serious: Yes (Other)
  Sender: FDA-Public Use
  Company Number: NO-TEVA-378827ISR

PATIENT
  Sex: Female

DRUGS (3)
  1. TOPIRAMATE [Suspect]
     Indication: EPILEPSY
     Dosage: DOSAGE FORM: UNSPECIFIED
     Route: 048
  2. LEVETIRACETAM [Suspect]
     Indication: EPILEPSY
     Dosage: DOSAGE FORM: UNSPECIFIED
     Route: 065
  3. TEGRETOL [Suspect]
     Indication: EPILEPSY
     Dosage: 1200 MILLIGRAM DAILY; DOSAGE FORM: UNSPECIFIED
     Route: 065

REACTIONS (2)
  - Abortion spontaneous [Unknown]
  - Maternal exposure during pregnancy [Recovered/Resolved]
